FAERS Safety Report 10515398 (Version 1)
Quarter: 2014Q4

REPORT INFORMATION
  Report Type: Spontaneous
  Country: US (occurrence: None)
  Receive Date: 20141009
  Receipt Date: 20141009
  Transmission Date: 20150528
  Serious: Yes (Other)
  Sender: FDA-Public Use
  Company Number: 2014IP008

PATIENT
  Age: 63 Year
  Sex: Male

DRUGS (1)
  1. DEXMETHYLPHENIDATE HYDROCHLORIDE. [Suspect]
     Active Substance: DEXMETHYLPHENIDATE HYDROCHLORIDE
     Indication: ATTENTION DEFICIT/HYPERACTIVITY DISORDER
     Route: 048
     Dates: start: 20140722

REACTIONS (6)
  - Poor quality sleep [None]
  - Drug effect increased [None]
  - Disturbance in attention [None]
  - Fatigue [None]
  - Seizure [None]
  - Product quality issue [None]

NARRATIVE: CASE EVENT DATE: 2014
